FAERS Safety Report 5122884-4 (Version None)
Quarter: 2006Q4

REPORT INFORMATION
  Report Type: 
  Country: None (occurrence: None)
  Receive Date: 20061009
  Receipt Date: 20061003
  Transmission Date: 20070319
  Serious: Yes (Hospitalization)
  Sender: FDA-Public Use
  Company Number: 2006CG01626

PATIENT
  Age: 50 Year
  Sex: Female

DRUGS (1)
  1. ZOMIG [Suspect]
     Indication: MIGRAINE
     Route: 048

REACTIONS (2)
  - CAROTID ARTERY DISSECTION [None]
  - ISCHAEMIC STROKE [None]
